FAERS Safety Report 18639930 (Version 1)
Quarter: 2020Q4

REPORT INFORMATION
  Report Type: Spontaneous
  Country: US (occurrence: US)
  Receive Date: 20201220
  Receipt Date: 20201220
  Transmission Date: 20210114
  Serious: No
  Sender: FDA-Public Use
  Company Number: US-PACIRA-202000041

PATIENT

DRUGS (1)
  1. EXPAREL [Suspect]
     Active Substance: BUPIVACAINE
     Indication: TRANSVERSUS ABDOMINIS PLANE BLOCK
     Dosage: UNKNOWN
     Route: 065

REACTIONS (2)
  - Injection site discomfort [Unknown]
  - Administration site oedema [Unknown]
